FAERS Safety Report 6873158-2 (Version None)
Quarter: 2010Q3

REPORT INFORMATION
  Report Type: 
  Country: None (occurrence: None)
  Receive Date: 20100723
  Receipt Date: 20081222
  Transmission Date: 20110219
  Serious: No
  Sender: FDA-Public Use
  Company Number: US-PFIZER INC-2008159613

PATIENT
  Sex: Female
  Weight: 60.544 kg

DRUGS (5)
  1. CHANTIX [Suspect]
     Indication: SMOKING CESSATION THERAPY
     Dosage: 1 MG, 2X/DAY
     Dates: start: 20080101
  2. HERCEPTIN [Suspect]
     Indication: BREAST CANCER
     Dosage: UNK
     Route: 042
     Dates: start: 20081201
  3. SYNTHROID [Concomitant]
     Dosage: UNK
  4. CLONAZEPAM [Concomitant]
     Dosage: UNK
  5. CIPRO [Concomitant]
     Indication: URINARY TRACT INFECTION

REACTIONS (5)
  - ARTHRALGIA [None]
  - BACK PAIN [None]
  - FLUID RETENTION [None]
  - JOINT STIFFNESS [None]
  - JOINT SWELLING [None]
